FAERS Safety Report 10098661 (Version 1)
Quarter: 2014Q2

REPORT INFORMATION
  Report Type: Spontaneous
  Country: US (occurrence: None)
  Receive Date: 20140422
  Receipt Date: 20140422
  Transmission Date: 20141212
  Serious: Yes (Death, Hospitalization)
  Sender: FDA-Public Use
  Company Number: None

PATIENT
  Age: 59 Year
  Sex: Male
  Weight: 104.6 kg

DRUGS (3)
  1. CYTARABINE [Suspect]
  2. IDARUBICIN [Suspect]
  3. PRAVASTATIN SODIUM [Suspect]

REACTIONS (1)
  - Disease progression [None]
